FAERS Safety Report 26091837 (Version 2)
Quarter: 2025Q4

REPORT INFORMATION
  Report Type: Spontaneous
  Country: US (occurrence: US)
  Receive Date: 20251126
  Receipt Date: 20251219
  Transmission Date: 20260117
  Serious: No
  Sender: TEVA
  Company Number: US-TEVA-VS-3394131

PATIENT
  Age: 86 Year
  Sex: Female

DRUGS (2)
  1. FLUOXETINE [Suspect]
     Active Substance: FLUOXETINE HYDROCHLORIDE
     Indication: Product used for unknown indication
     Dosage: RE-STARTING THE PRODUCT FOR 7 DAYS ON 10 MG, AND THEN INCREASING TO 20 MG DAILY
     Route: 048
  2. LORAZEPAM [Suspect]
     Active Substance: LORAZEPAM
     Indication: Product used for unknown indication
     Route: 048

REACTIONS (3)
  - Anxiety [Unknown]
  - Drug intolerance [Unknown]
  - Sleep disorder [Unknown]
